FAERS Safety Report 6102683-7 (Version None)
Quarter: 2009Q1

REPORT INFORMATION
  Report Type: 
  Country: None (occurrence: None)
  Receive Date: 20090304
  Receipt Date: 20081230
  Transmission Date: 20090719
  Serious: No
  Sender: FDA-Public Use
  Company Number: A0761908A

PATIENT
  Age: 82 Year
  Sex: Female

DRUGS (4)
  1. REQUIP [Suspect]
     Indication: RESTLESS LEGS SYNDROME
     Dosage: 1MG PER DAY
     Route: 048
     Dates: start: 20081101
  2. COREG [Concomitant]
  3. SINEMET [Concomitant]
  4. NORVASC [Concomitant]

REACTIONS (1)
  - HOT FLUSH [None]
